FAERS Safety Report 4994051-6 (Version None)
Quarter: 2006Q1

REPORT INFORMATION
  Report Type: 
  Country: None (occurrence: None)
  Receive Date: 20060313
  Receipt Date: 20050201
  Transmission Date: 20060701
  Serious: Yes (Hospitalization)
  Sender: FDA-Public Use
  Company Number: PHEH2005US01520

PATIENT
  Age: 21 Year
  Sex: Male

DRUGS (1)
  1. TRILEPTAL [Suspect]
     Indication: BIPOLAR DISORDER
     Dosage: 300 MG TID ORAL
     Route: 048
     Dates: start: 20041111, end: 20041121

REACTIONS (2)
  - CHEST PAIN [None]
  - HYPOAESTHESIA [None]
